FAERS Safety Report 6278352-X (Version None)
Quarter: 2009Q3

REPORT INFORMATION
  Report Type: 
  Country: None (occurrence: None)
  Receive Date: 20090722
  Receipt Date: 20090720
  Transmission Date: 20100115
  Serious: Yes (Other)
  Sender: FDA-Public Use
  Company Number: US-ASTRAZENECA-2009UW12947

PATIENT
  Age: 525 Month
  Sex: Male
  Weight: 76.2 kg

DRUGS (8)
  1. SEROQUEL [Suspect]
     Indication: BIPOLAR DISORDER
     Dosage: 25 MG AND 50 MG
     Route: 048
     Dates: start: 20050101, end: 20080101
  2. SEROQUEL [Suspect]
     Indication: OBSESSIVE-COMPULSIVE DISORDER
     Dosage: 25 MG AND 50 MG
     Route: 048
     Dates: start: 20050101, end: 20080101
  3. ABILIFY [Concomitant]
     Dates: start: 20050101, end: 20080101
  4. GEODON [Concomitant]
     Dates: start: 20050101, end: 20080101
  5. THORAZINE [Concomitant]
     Dates: start: 20050101, end: 20080101
  6. DEPAKOTE [Concomitant]
     Dates: start: 20050101, end: 20080101
  7. ZOLOFT [Concomitant]
     Dates: start: 20050101, end: 20080101
  8. CYCLOBENZAPRINE [Concomitant]
     Dates: start: 20050101, end: 20080101

REACTIONS (4)
  - DIABETES MELLITUS [None]
  - NECROTISING FASCIITIS [None]
  - PANCREATITIS [None]
  - WEIGHT INCREASED [None]
